FAERS Safety Report 6048317-1 (Version None)
Quarter: 2009Q1

REPORT INFORMATION
  Report Type: 
  Country: None (occurrence: None)
  Receive Date: 20090123
  Receipt Date: 20090113
  Transmission Date: 20090719
  Serious: Yes (Other)
  Sender: FDA-Public Use
  Company Number: US-PFIZER INC-2009155247

PATIENT
  Sex: Male
  Weight: 101.13 kg

DRUGS (4)
  1. NEURONTIN [Suspect]
     Indication: NAUSEA
     Dosage: FREQUENCY: EVERYDAY;
     Dates: start: 19950101, end: 19970101
  2. NEURONTIN [Suspect]
     Indication: NERVOUSNESS
  3. LYRICA [Suspect]
     Indication: NAUSEA
     Dosage: 225 MG, 3X/DAY
     Route: 048
     Dates: start: 19970101
  4. LYRICA [Suspect]
     Indication: NERVOUSNESS

REACTIONS (3)
  - CARDIAC FAILURE CONGESTIVE [None]
  - MORBID THOUGHTS [None]
  - MYOCARDIAL INFARCTION [None]
